FAERS Safety Report 9199271 (Version 1)
Quarter: 2013Q1

REPORT INFORMATION
  Report Type: Spontaneous
  Country: US (occurrence: US)
  Receive Date: 20130329
  Receipt Date: 20130329
  Transmission Date: 20140127
  Serious: No
  Sender: FDA-Public Use
  Company Number: US-PFIZER INC-2013096267

PATIENT
  Age: 70 Year
  Sex: Female
  Weight: 109 kg

DRUGS (8)
  1. TOVIAZ [Suspect]
     Indication: URINARY INCONTINENCE
     Dosage: 8 MG, 1X/DAY
     Route: 048
     Dates: start: 201303, end: 201303
  2. SPIRONOLACTONE [Concomitant]
     Indication: CARDIAC DISORDER
     Dosage: 25 MG, 1X/DAY
     Route: 048
  3. METOPROLOL [Concomitant]
     Indication: CARDIAC DISORDER
     Dosage: 50 MG, 2X/DAY
     Route: 048
  4. LISINOPRIL [Concomitant]
     Indication: CARDIAC DISORDER
     Dosage: 20 MG, 1X/DAY
     Route: 048
  5. ROPINIROLE [Concomitant]
     Indication: RESTLESS LEGS SYNDROME
     Dosage: 5 MG, 1X/DAY
     Route: 048
  6. VITAMIN D [Concomitant]
     Dosage: UNK, 1X/DAY
  7. CALCIUM [Concomitant]
     Dosage: UNK, 1X/DAY
  8. ACETYLSALICYLIC ACID [Concomitant]
     Dosage: 81 MG, 1X/DAY
     Route: 048

REACTIONS (6)
  - Hypersensitivity [Unknown]
  - Urinary tract inflammation [Unknown]
  - Pelvic discomfort [Unknown]
  - Perineal pain [Unknown]
  - Pruritus [Unknown]
  - Urticaria [Unknown]
